FAERS Safety Report 8772421 (Version 2)
Quarter: 2012Q4

REPORT INFORMATION
  Report Type: 
  Country: AU (occurrence: AU)
  Receive Date: 20120905
  Receipt Date: 20120905
  Transmission Date: 20130627
  Serious: Yes (Other)
  Sender: FDA-Public Use
  Company Number: PHHY2012AU071130

PATIENT
  Age: 40 Year
  Sex: Female
  Weight: 65 kg

DRUGS (1)
  1. CLOZARIL [Suspect]
     Route: 048
     Dates: start: 20120418

REACTIONS (7)
  - Bundle branch block right [Unknown]
  - ECG signs of myocardial ischaemia [Unknown]
  - Electrocardiogram abnormal [Unknown]
  - Electrocardiogram repolarisation abnormality [Unknown]
  - Electrocardiogram T wave inversion [Unknown]
  - Blood pressure increased [Unknown]
  - Right atrial hypertrophy [None]
